FAERS Safety Report 15723030 (Version 5)
Quarter: 2019Q1

REPORT INFORMATION
  Report Type: Report from Study
  Country: US (occurrence: US)
  Receive Date: 20181214
  Receipt Date: 20190125
  Transmission Date: 20190417
  Serious: No
  Sender: FDA-Public Use
  Company Number: US-ALEXION PHARMACEUTICALS INC.-A201816331

PATIENT
  Sex: Female

DRUGS (3)
  1. BENADRYL [Concomitant]
     Active Substance: DIPHENHYDRAMINE HYDROCHLORIDE
     Indication: PRODUCT USED FOR UNKNOWN INDICATION
     Dosage: UNK
     Route: 065
  2. SOLIRIS [Suspect]
     Active Substance: ECULIZUMAB
     Indication: PRODUCT USED FOR UNKNOWN INDICATION
     Dosage: UNK, QW
     Route: 065
  3. SOLIRIS [Suspect]
     Active Substance: ECULIZUMAB
     Dosage: UNK, Q2W
     Route: 065

REACTIONS (9)
  - Malaise [Unknown]
  - Asthenia [Unknown]
  - Oropharyngeal pain [Unknown]
  - Cough [Unknown]
  - Nasopharyngitis [Recovering/Resolving]
  - Drug ineffective [Unknown]
  - Secretion discharge [Unknown]
  - Fatigue [Recovering/Resolving]
  - Eyelid ptosis [Unknown]
